FAERS Safety Report 17015766 (Version 1)
Quarter: 2019Q4

REPORT INFORMATION
  Report Type: Spontaneous
  Country: US (occurrence: US)
  Receive Date: 20191111
  Receipt Date: 20191111
  Transmission Date: 20200122
  Serious: Yes (Death, Life-Threatening, Other)
  Sender: FDA-Public Use
  Company Number: PHHY2012US144052

PATIENT
  Age: 69 Year
  Sex: Female

DRUGS (2)
  1. HEPARIN [Suspect]
     Active Substance: HEPARIN SODIUM
     Indication: MYOCARDIAL INFARCTION
     Route: 065
  2. ANGIOMAX [Suspect]
     Active Substance: BIVALIRUDIN
     Indication: MYOCARDIAL INFARCTION
     Route: 065

REACTIONS (6)
  - Pulmonary thrombosis [Unknown]
  - Reperfusion injury [Unknown]
  - Vomiting [Unknown]
  - Coagulation time prolonged [Unknown]
  - Haemorrhage [Fatal]
  - Nausea [Unknown]
